FAERS Safety Report 22192213 (Version 1)
Quarter: 2023Q2

REPORT INFORMATION
  Report Type: Spontaneous
  Country: US (occurrence: US)
  Receive Date: 20230410
  Receipt Date: 20230410
  Transmission Date: 20230722
  Serious: No
  Sender: FDA-Public Use
  Company Number: US-SA-SAC20230406001372

PATIENT
  Age: 48 Year
  Sex: Female
  Weight: 133 kg

DRUGS (12)
  1. DUPIXENT [Suspect]
     Active Substance: DUPILUMAB
     Indication: Dermatitis atopic
     Dosage: 300 MG, QOW
     Route: 058
     Dates: start: 20230324
  2. ACTEMRA [Suspect]
     Active Substance: TOCILIZUMAB
     Dosage: UNK
  3. VITAMIN B COMPLEX [Concomitant]
     Active Substance: CYANOCOBALAMIN\DEXPANTHENOL\NIACINAMIDE\PYRIDOXINE HYDROCHLORIDE\RIBOFLAVIN 5^-PHOSPHATE SODIUM\THIA
     Dosage: UNK
  4. BERBERINE [Concomitant]
     Active Substance: BERBERINE
  5. ARGININE [Concomitant]
     Active Substance: ARGININE
  6. FISH OIL [Concomitant]
     Active Substance: FISH OIL
  7. SERTRALINE HYDROCHLORIDE [Concomitant]
     Active Substance: SERTRALINE HYDROCHLORIDE
  8. LISINOPRIL [Concomitant]
     Active Substance: LISINOPRIL
  9. COENZYME Q10 [Concomitant]
     Active Substance: DIETARY SUPPLEMENT\UBIDECARENONE
  10. CINNAMON\HERBALS [Concomitant]
     Active Substance: CINNAMON\HERBALS
  11. METHYLFOLAT [Concomitant]
  12. FLAXSEED [Concomitant]
     Active Substance: FLAX SEED

REACTIONS (5)
  - Lymphadenopathy [Unknown]
  - Pain in jaw [Unknown]
  - Injection site pain [Recovered/Resolved]
  - Oral herpes [Not Recovered/Not Resolved]
  - Condition aggravated [Not Recovered/Not Resolved]

NARRATIVE: CASE EVENT DATE: 20230101
